FAERS Safety Report 4296240-5 (Version None)
Quarter: 2004Q1

REPORT INFORMATION
  Report Type: 
  Country: None (occurrence: None)
  Receive Date: 20040217
  Receipt Date: 20030925
  Transmission Date: 20041129
  Serious: No
  Sender: FDA-Public Use
  Company Number: US-GLAXOSMITHKLINE-A0427515A

PATIENT
  Age: 71 Year
  Sex: Female

DRUGS (15)
  1. LAMICTAL [Suspect]
     Indication: BIPOLAR DISORDER
     Dosage: 25MG ALTERNATE DAYS
     Route: 048
     Dates: start: 20030922
  2. UNIPHYL [Concomitant]
  3. VERAPAMIL [Concomitant]
  4. PREDNISONE [Concomitant]
  5. SLOW-K [Concomitant]
  6. PRILOSEC [Concomitant]
  7. KLONOPIN [Concomitant]
  8. CELEXA [Concomitant]
  9. RISPERDAL [Concomitant]
  10. REMERON [Concomitant]
  11. DETROL LA [Concomitant]
  12. DARVOCET-N 100 [Concomitant]
  13. UNSPECIFIED MEDICATION [Concomitant]
  14. ATROVENT [Concomitant]
  15. SEREVENT [Concomitant]

REACTIONS (1)
  - DYSPNOEA [None]
